FAERS Safety Report 24665298 (Version 1)
Quarter: 2024Q4

REPORT INFORMATION
  Report Type: Spontaneous
  Country: GB (occurrence: GB)
  Receive Date: 20241126
  Receipt Date: 20241126
  Transmission Date: 20250115
  Serious: Yes (Other)
  Sender: TEVA
  Company Number: None

PATIENT
  Age: 28 Year
  Sex: Female
  Weight: 83 kg

DRUGS (2)
  1. HALOPERIDOL [Suspect]
     Active Substance: HALOPERIDOL
     Indication: Emotional distress
     Route: 065
  2. PROMETHAZINE [Concomitant]
     Active Substance: PROMETHAZINE HYDROCHLORIDE
     Indication: Emotional distress

REACTIONS (2)
  - Fluid retention [Not Recovered/Not Resolved]
  - Bruxism [Not Recovered/Not Resolved]

NARRATIVE: CASE EVENT DATE: 20241110
